FAERS Safety Report 10027238 (Version 3)
Quarter: 2014Q2

REPORT INFORMATION
  Report Type: Spontaneous
  Country: US (occurrence: US)
  Receive Date: 20140321
  Receipt Date: 20140410
  Transmission Date: 20141212
  Serious: Yes (Other)
  Sender: FDA-Public Use
  Company Number: US-BRISTOL-MYERS SQUIBB COMPANY-20474805

PATIENT
  Age: 68 Year
  Sex: Female
  Weight: 80.27 kg

DRUGS (7)
  1. BYDUREON [Suspect]
     Indication: TYPE 2 DIABETES MELLITUS
     Route: 058
  2. BYETTA PEN DISPOSABLE [Suspect]
     Indication: TYPE 2 DIABETES MELLITUS
  3. METFORMIN HCL TABS [Suspect]
     Indication: TYPE 2 DIABETES MELLITUS
  4. CELEXA [Concomitant]
  5. LIPITOR [Concomitant]
     Dosage: 1DF: 80 UNITS NOS
  6. MECLIZINE [Concomitant]
     Dosage: 1/2 PI1L 4X/DAY
  7. COREG [Concomitant]
     Dosage: TABS

REACTIONS (2)
  - Pancreatitis [Recovered/Resolved]
  - Renal impairment [Recovering/Resolving]
